FAERS Safety Report 20145773 (Version 1)
Quarter: 2021Q4

REPORT INFORMATION
  Report Type: Other
  Country: US (occurrence: None)
  Receive Date: 20211203
  Receipt Date: 20211203
  Transmission Date: 20220303
  Serious: No
  Sender: FDA-Public Use
  Company Number: US-ROCHE-2972081

PATIENT
  Sex: Female

DRUGS (1)
  1. OCREVUS [Suspect]
     Active Substance: OCRELIZUMAB
     Indication: Multiple sclerosis
     Dosage: ON DAY 1 AND 14; DATE OF TREATMENT: 2021-01-14, 2020-12-20, 2020-04-20, 2019-10-21, 2019-11-04,
     Route: 065
     Dates: start: 20191021

REACTIONS (1)
  - COVID-19 [Unknown]
